FAERS Safety Report 18457799 (Version 1)
Quarter: 2020Q4

REPORT INFORMATION
  Report Type: Report from Study
  Country: US (occurrence: US)
  Receive Date: 20201103
  Receipt Date: 20201103
  Transmission Date: 20210114
  Serious: Yes (Life-Threatening, Hospitalization, Other)
  Sender: FDA-Public Use
  Company Number: US-IMMUNOMEDICS, INC.-2020IMMU000567

PATIENT
  Age: 66 Year
  Sex: Female
  Weight: 91.9 kg

DRUGS (30)
  1. TYLENOL [Concomitant]
     Active Substance: ACETAMINOPHEN
     Indication: PAIN
     Dosage: 500 MG (TABLET), Q6H, PRN
     Route: 048
     Dates: start: 20200617
  2. STIOLTO RESPIMAT [Concomitant]
     Active Substance: OLODATEROL HYDROCHLORIDE\TIOTROPIUM BROMIDE MONOHYDRATE
     Indication: CHRONIC OBSTRUCTIVE PULMONARY DISEASE
     Dosage: 2 DF (PUFFS, 2.5-2.5 MCG/ACTUATION MIST) QD
     Dates: start: 20200817
  3. CLINDAMYCIN. [Concomitant]
     Active Substance: CLINDAMYCIN
     Indication: CELLULITIS
     Dosage: 300 MG, TID
     Route: 048
     Dates: start: 20200823, end: 20200826
  4. MONTELUKAST [Concomitant]
     Active Substance: MONTELUKAST SODIUM
     Indication: CHRONIC OBSTRUCTIVE PULMONARY DISEASE
     Dosage: 10 MG, QD
     Route: 048
     Dates: start: 20200617, end: 20200902
  5. DIPHENHYDRAMINE. [Concomitant]
     Active Substance: DIPHENHYDRAMINE
     Indication: SKIN INDURATION
     Dosage: UNK MG, QD
     Route: 048
     Dates: start: 20200727
  6. DIPHENHYDRAMINE. [Concomitant]
     Active Substance: DIPHENHYDRAMINE
     Indication: PRURITUS
     Dosage: (BENADRYL CREME), UNK %
     Route: 061
     Dates: start: 20200902
  7. ALBUTEROL. [Concomitant]
     Active Substance: ALBUTEROL
     Indication: CHRONIC OBSTRUCTIVE PULMONARY DISEASE
     Dosage: 180UG (2 PUFFS X90 UG/ACTUATION INHALER), Q6H, PRN
     Dates: start: 20170201
  8. LASIX [Concomitant]
     Active Substance: FUROSEMIDE
     Dosage: 20 MG, QD
     Route: 048
  9. PROTONIX [Concomitant]
     Active Substance: PANTOPRAZOLE SODIUM
     Indication: PRODUCT USED FOR UNKNOWN INDICATION
     Dosage: 20 MG (EC TABLET)
     Route: 065
     Dates: start: 20200901, end: 20200914
  10. SACITUZUMAB GOVITECAN. [Suspect]
     Active Substance: SACITUZUMAB GOVITECAN
     Dosage: 10 MG/KG DAYS 1 AND 8 OF 21-DAYS CYCLE
     Route: 042
     Dates: start: 20200909, end: 20200909
  11. OXYGEN. [Concomitant]
     Active Substance: OXYGEN
     Indication: HYPOXIA
     Dosage: 3-5 L NASAL CANNULA (2L-REST, 3L-SLEEP, 4L-ACTIVITY), CONTINOUS
     Route: 045
     Dates: start: 20200823
  12. FLONASE [Concomitant]
     Active Substance: FLUTICASONE PROPIONATE
     Indication: HYPERSENSITIVITY
     Dosage: 50 UG/ACTUATION NASAL SPRAY, 1 SPRAY INTO EACH NOSTRIL, QD, PRN
     Route: 045
     Dates: start: 20170804
  13. TYLENOL [Concomitant]
     Active Substance: ACETAMINOPHEN
     Indication: ARTHROPATHY
  14. PREVACID [Concomitant]
     Active Substance: LANSOPRAZOLE
     Indication: GASTROOESOPHAGEAL REFLUX DISEASE
  15. EMLA [Concomitant]
     Active Substance: LIDOCAINE\PRILOCAINE
     Indication: PAIN
     Dosage: CREAM, 1 APPLICATION TO PORT SITE PRIOR TO ACCESS, QD, PRN
     Route: 061
     Dates: start: 20200909, end: 20200914
  16. EMLA [Concomitant]
     Active Substance: LIDOCAINE\PRILOCAINE
     Indication: ANAESTHETIC PREMEDICATION
  17. PREVACID [Concomitant]
     Active Substance: LANSOPRAZOLE
     Indication: DYSPEPSIA
     Dosage: 30 MG (CAPSULE), QD PRN
     Route: 048
     Dates: start: 20170804
  18. IMODIUM [Concomitant]
     Active Substance: LOPERAMIDE HYDROCHLORIDE
     Indication: DIARRHOEA
     Dosage: (OTC) 2 MG, PRN
     Route: 048
     Dates: start: 20200902, end: 20200909
  19. PAXIL [Concomitant]
     Active Substance: PAROXETINE HYDROCHLORIDE
     Indication: ANXIETY
     Dosage: 20 MG (TABLET), QD MORNING
     Route: 048
     Dates: start: 2006
  20. CHOLECALCIFEROL [Concomitant]
     Active Substance: CHOLECALCIFEROL
     Indication: SUPPLEMENTATION THERAPY
     Dosage: 1000 DF (UNITS), QD
     Route: 048
     Dates: start: 20180718
  21. SACITUZUMAB GOVITECAN. [Suspect]
     Active Substance: SACITUZUMAB GOVITECAN
     Indication: BREAST CANCER METASTATIC
     Dosage: 10 MG/KG DAYS 1 AND 8 OF 21-DAYS CYCLE
     Route: 042
     Dates: start: 20200902, end: 20200902
  22. PROPRANOLOL [Concomitant]
     Active Substance: PROPRANOLOL HYDROCHLORIDE
     Indication: MITRAL VALVE PROLAPSE
     Dosage: 80 MG (24 HR CAPSULE), QD
     Route: 048
     Dates: start: 1980
  23. ALBUTEROL. [Concomitant]
     Active Substance: ALBUTEROL
     Indication: WHEEZING
  24. LOMOTIL [Concomitant]
     Active Substance: ATROPINE SULFATE\DIPHENOXYLATE HYDROCHLORIDE
     Indication: DIARRHOEA
     Dosage: 2 DF (TABLETS, 2.5 MG/0.025 MG), QID (Q6H)
     Route: 048
     Dates: start: 20200909, end: 20200914
  25. MAGINEX [Concomitant]
     Indication: PRODUCT USED FOR UNKNOWN INDICATION
     Dosage: 615 MG (61 MG EC TABLET), QD
     Route: 048
  26. POTASSIUM CHLORIDE. [Concomitant]
     Active Substance: POTASSIUM CHLORIDE
     Indication: HYPOKALAEMIA
     Dosage: 20 MEQ (1 CR TABLET), QD, EVERY MORNING
     Route: 048
     Dates: start: 20200823, end: 20200922
  27. AMLODIPINE [Concomitant]
     Active Substance: AMLODIPINE BESYLATE
     Indication: PULMONARY HYPERTENSION
     Dosage: 5 MG (TABLET), QD
     Route: 048
     Dates: start: 20180718
  28. TIOTROPIUM [Concomitant]
     Active Substance: TIOTROPIUM
     Indication: CHRONIC OBSTRUCTIVE PULMONARY DISEASE
     Dosage: 1 DF (CAPSULE), QD
     Dates: start: 20200102
  29. FLONASE [Concomitant]
     Active Substance: FLUTICASONE PROPIONATE
     Indication: SEASONAL ALLERGY
  30. LASIX [Concomitant]
     Active Substance: FUROSEMIDE
     Indication: PLEURAL EFFUSION
     Dosage: 40 MG (1 TABLET), QD
     Route: 048
     Dates: start: 20200823, end: 20200902

REACTIONS (5)
  - Respiratory failure [Recovering/Resolving]
  - Diarrhoea [Recovered/Resolved]
  - White blood cell count decreased [Recovered/Resolved]
  - Neutrophil count decreased [Recovered/Resolved]
  - Myocardial infarction [Recovering/Resolving]

NARRATIVE: CASE EVENT DATE: 20200914
